FAERS Safety Report 5044006-0 (Version None)
Quarter: 2006Q2

REPORT INFORMATION
  Report Type: 
  Country: None (occurrence: None)
  Receive Date: 20060601
  Receipt Date: 20060219
  Transmission Date: 20061013
  Serious: No
  Sender: FDA-Public Use
  Company Number: 2006PV008991

PATIENT
  Age: 73 Year
  Sex: Male
  Weight: 65.7716 kg

DRUGS (6)
  1. BYETTA [Suspect]
     Indication: DIABETES MELLITUS NON-INSULIN-DEPENDENT
     Dosage: 5 MCG ; BID; SC
     Route: 058
     Dates: start: 20060215
  2. METFORMIN [Concomitant]
  3. AMARYL [Concomitant]
  4. ACTIS [Concomitant]
  5. LANTUS [Concomitant]
  6. SOTAKIK [Concomitant]

REACTIONS (3)
  - BLOOD GLUCOSE INCREASED [None]
  - EYE HAEMORRHAGE [None]
  - WEIGHT DECREASED [None]
